FAERS Safety Report 23986915 (Version 5)
Quarter: 2024Q3

REPORT INFORMATION
  Report Type: Report from Study
  Country: CN (occurrence: CN)
  Receive Date: 20240618
  Receipt Date: 20240924
  Transmission Date: 20241016
  Serious: Yes (Hospitalization, Other)
  Sender: BAXTER
  Company Number: CN-BAXTER-2024BAX019816

PATIENT
  Age: 63 Year
  Sex: Male
  Weight: 48.8 kg

DRUGS (17)
  1. CYCLOPHOSPHAMIDE [Suspect]
     Active Substance: CYCLOPHOSPHAMIDE
     Indication: Diffuse large B-cell lymphoma stage IV
     Dosage: 1170 MG, EVERY 3 WEEKS
     Route: 042
     Dates: start: 20240219, end: 20240524
  2. CYCLOPHOSPHAMIDE [Suspect]
     Active Substance: CYCLOPHOSPHAMIDE
     Dosage: 1162.5 MG, EVERY 3 WEEKS
     Route: 042
     Dates: start: 20240813
  3. EPCORITAMAB [Suspect]
     Active Substance: EPCORITAMAB
     Indication: Diffuse large B-cell lymphoma stage IV
     Dosage: 48 MG C1 (STEP-UP), CYCLES 2 - 4 (21-DAY CYCLE, WEEKLY DOSE), C5 - 8 (21-DAY CYCLE, EVERY 3 WEEKS) P
     Route: 058
     Dates: start: 20240220, end: 20240524
  4. EPCORITAMAB [Suspect]
     Active Substance: EPCORITAMAB
     Dosage: 48 MG C1 (STEP-UP), CYCLES 2 - 4 (21-DAY CYCLE, WEEKLY DOSE), C5 - 8 (21-DAY CYCLE, EVERY 3 WEEKS) P
     Route: 058
     Dates: start: 20240813
  5. VINCRISTINE [Suspect]
     Active Substance: VINCRISTINE
     Indication: Diffuse large B-cell lymphoma stage IV
     Dosage: 2 MG, EVERY 3 WEEKS
     Route: 042
     Dates: start: 20240219, end: 20240524
  6. VINCRISTINE [Suspect]
     Active Substance: VINCRISTINE
     Dosage: 2 MG, EVERY 3 WEEKS
     Route: 042
     Dates: start: 20240813
  7. RITUXIMAB [Suspect]
     Active Substance: RITUXIMAB
     Indication: Diffuse large B-cell lymphoma stage IV
     Dosage: 585 MG, EVERY 3 WEEKS
     Route: 042
     Dates: start: 20240219, end: 20240524
  8. RITUXIMAB [Suspect]
     Active Substance: RITUXIMAB
     Dosage: 581.3 MG, EVERY 3 WEEKS
     Route: 042
     Dates: start: 20240813
  9. DOXORUBICIN [Suspect]
     Active Substance: DOXORUBICIN
     Indication: Diffuse large B-cell lymphoma stage IV
     Dosage: 78 MG, EVERY 3 WEEKS
     Route: 042
     Dates: start: 20240219, end: 20240524
  10. DOXORUBICIN [Suspect]
     Active Substance: DOXORUBICIN
     Dosage: 77.5 MG, EVERY 3 WEEKS
     Route: 042
     Dates: start: 20240813
  11. PREDNISONE [Suspect]
     Active Substance: PREDNISONE
     Indication: Diffuse large B-cell lymphoma stage IV
     Dosage: 100 MG DAILY C1-6, DAY 1-5, EVERY 1 DAYS
     Route: 048
     Dates: start: 20240219, end: 20240528
  12. PREDNISONE [Suspect]
     Active Substance: PREDNISONE
     Dosage: 100 MG DAILY C1-6, DAY 1-5, EVERY 1 DAYS
     Route: 048
     Dates: start: 20240813
  13. ENTECAVIR [Concomitant]
     Active Substance: ENTECAVIR
     Indication: Antiviral prophylaxis
     Dosage: 0.5 MG, EVERY 1 DAYS
     Route: 065
     Dates: start: 20240207
  14. OMEPRAZOLE [Concomitant]
     Active Substance: OMEPRAZOLE
     Indication: Gastrointestinal disorder prophylaxis
     Dosage: 20 MG, 2/DAYS
     Route: 065
     Dates: start: 20240301
  15. ESTAZOLAM [Concomitant]
     Active Substance: ESTAZOLAM
     Indication: Insomnia
     Dosage: 1 MG, AS NECESSARY
     Route: 065
     Dates: start: 20240225
  16. METHYLCOBALAMIN [Concomitant]
     Active Substance: METHYLCOBALAMIN
     Indication: Hypoaesthesia
     Dosage: 0.5 MG, 3/DAYS
     Route: 065
     Dates: start: 20240425
  17. Live combined bifidobacterium, lactobacillus and enterococcus [Concomitant]
     Indication: Dyspepsia
     Dosage: 3 DOSAGE FORM, 2 DAYS
     Route: 065
     Dates: start: 20240205

REACTIONS (1)
  - Ileus [Recovered/Resolved]

NARRATIVE: CASE EVENT DATE: 20240603
